FAERS Safety Report 6522595-4 (Version None)
Quarter: 2009Q4

REPORT INFORMATION
  Report Type: 
  Country: None (occurrence: None)
  Receive Date: 20091230
  Receipt Date: 20091221
  Transmission Date: 20100525
  Serious: Yes (Hospitalization)
  Sender: FDA-Public Use
  Company Number: DE-AMGEN-US362909

PATIENT
  Age: 53 Year
  Sex: Female

DRUGS (4)
  1. ENBREL [Suspect]
     Indication: PYODERMA GANGRENOSUM
     Route: 058
     Dates: start: 20090518
  2. BISOPROLOL [Concomitant]
     Indication: HYPERTENSION
     Dosage: 5MG (FREQUENCY UNKNOWN)
     Route: 048
  3. CORTISONE [Concomitant]
     Dosage: UNKNOWN
     Route: 065
  4. TRAMADOL HCL [Concomitant]
     Dosage: 3-4 X 25 DROPS
     Route: 048

REACTIONS (10)
  - ANGIOPATHY [None]
  - ARTHRALGIA [None]
  - CONDITION AGGRAVATED [None]
  - DRUG INEFFECTIVE [None]
  - FURUNCLE [None]
  - GAIT DISTURBANCE [None]
  - JOINT STIFFNESS [None]
  - JOINT SWELLING [None]
  - OEDEMA PERIPHERAL [None]
  - OPEN WOUND [None]
